FAERS Safety Report 22062228 (Version 1)
Quarter: 2023Q1

REPORT INFORMATION
  Report Type: Spontaneous
  Country: CH (occurrence: CH)
  Receive Date: 20230304
  Receipt Date: 20230304
  Transmission Date: 20230418
  Serious: Yes (Other)
  Sender: FDA-Public Use
  Company Number: None

PATIENT
  Age: 4 Year
  Sex: Female
  Weight: 41.2 kg

DRUGS (6)
  1. RISPERIDONE [Suspect]
     Active Substance: RISPERIDONE
     Indication: Product used for unknown indication
     Dates: start: 2018, end: 202103
  2. RISPERIDONE [Suspect]
     Active Substance: RISPERIDONE
     Dates: start: 202103
  3. RISPERIDONE [Suspect]
     Active Substance: RISPERIDONE
     Dosage: .5 MILLIGRAM DAILY; IN FEBRUARY 2022 (IN THE EVENING)
  4. CARBAMAZEPINE [Concomitant]
     Active Substance: CARBAMAZEPINE
     Indication: Product used for unknown indication
     Dosage: 360 MILLIGRAM DAILY; 4.5MG/KG 2X/D  , 180 MG 2X/D
  5. TRIPTORELIN PAMOATE [Concomitant]
     Active Substance: TRIPTORELIN PAMOATE
     Indication: Product used for unknown indication
     Dosage: (INTRODUCED IN OCTOBER 2021, DOSE UNCHANGED SINCE JULY 2022)
     Dates: start: 202207
  6. TRIPTORELIN PAMOATE [Concomitant]
     Active Substance: TRIPTORELIN PAMOATE
     Dosage: DURATION : 9 MONTH
     Dates: start: 202110, end: 202207

REACTIONS (3)
  - Somnolence [Not Recovered/Not Resolved]
  - Middle insomnia [Not Recovered/Not Resolved]
  - Hyperphagia [Not Recovered/Not Resolved]

NARRATIVE: CASE EVENT DATE: 20180101
